FAERS Safety Report 6232849-7 (Version None)
Quarter: 2009Q2

REPORT INFORMATION
  Report Type: 
  Country: None (occurrence: None)
  Receive Date: 20090617
  Receipt Date: 20080926
  Transmission Date: 20091009
  Serious: No
  Sender: FDA-Public Use
  Company Number: US-ASTRAZENECA-2008UW20649

PATIENT
  Age: 64 Year
  Sex: Female
  Weight: 68 kg

DRUGS (4)
  1. FASLODEX [Suspect]
     Indication: BREAST CANCER
     Route: 048
     Dates: start: 20080904
  2. TOLAZAMIDE [Concomitant]
  3. VYTORIN [Concomitant]
  4. PROZAC [Concomitant]

REACTIONS (1)
  - HYPOAESTHESIA FACIAL [None]
